FAERS Safety Report 10222627 (Version 1)
Quarter: 2014Q2

REPORT INFORMATION
  Report Type: Spontaneous
  Country: TN (occurrence: TN)
  Receive Date: 20140606
  Receipt Date: 20140606
  Transmission Date: 20141212
  Serious: Yes (Other)
  Sender: FDA-Public Use
  Company Number: TN-ABBVIE-14P-160-1242889-00

PATIENT
  Age: 7 Year
  Sex: Male

DRUGS (4)
  1. VALPROATE SODIUM [Suspect]
     Indication: TONIC CONVULSION
  2. VALPROATE SODIUM [Suspect]
     Indication: CLONIC CONVULSION
  3. CLONAZEPAM [Concomitant]
     Indication: TONIC CONVULSION
  4. CLONAZEPAM [Concomitant]
     Indication: CLONIC CONVULSION

REACTIONS (1)
  - Metabolic disorder [Unknown]
